FAERS Safety Report 6888820-5 (Version None)
Quarter: 2010Q3

REPORT INFORMATION
  Report Type: 
  Country: None (occurrence: None)
  Receive Date: 20100730
  Receipt Date: 20100720
  Transmission Date: 20110219
  Serious: Yes (Hospitalization, Other)
  Sender: FDA-Public Use
  Company Number: AT-ABBOTT-10P-009-0653450-00

PATIENT
  Sex: Female

DRUGS (6)
  1. HUMIRA [Suspect]
     Indication: RHEUMATOID ARTHRITIS
     Dates: start: 20090624
  2. HUMIRA [Suspect]
     Dates: start: 20091203
  3. ACEMIN [Concomitant]
     Indication: HYPERTENSION
     Route: 048
  4. PREDNISONE TAB [Concomitant]
     Indication: RHEUMATOID ARTHRITIS
     Route: 048
     Dates: start: 20100406, end: 20100420
  5. PREDNISONE TAB [Concomitant]
     Indication: PSORIATIC ARTHROPATHY
  6. PREDNISONE TAB [Concomitant]
     Indication: ANKYLOSING SPONDYLITIS

REACTIONS (1)
  - ULCER [None]
